FAERS Safety Report 17956885 (Version 1)
Quarter: 2020Q2

REPORT INFORMATION
  Report Type: Spontaneous
  Country: US (occurrence: US)
  Receive Date: 20200629
  Receipt Date: 20200629
  Transmission Date: 20200714
  Serious: Yes (Disabling)
  Sender: FDA-Public Use
  Company Number: None

PATIENT
  Age: 34 Year
  Sex: Female
  Weight: 81 kg

DRUGS (1)
  1. ASPIRIN. [Suspect]
     Active Substance: ASPIRIN

REACTIONS (7)
  - Abdominal pain upper [None]
  - Dizziness [None]
  - Headache [None]
  - Pain in extremity [None]
  - Visual impairment [None]
  - Toothache [None]
  - Dyspnoea [None]

NARRATIVE: CASE EVENT DATE: 20120109
